FAERS Safety Report 8554102-9 (Version None)
Quarter: 2012Q3

REPORT INFORMATION
  Report Type: 
  Country: None (occurrence: None)
  Receive Date: 20120731
  Receipt Date: 20120720
  Transmission Date: 20120928
  Serious: Yes (Other)
  Sender: FDA-Public Use
  Company Number: PHEH2012US014260

PATIENT
  Sex: Female

DRUGS (4)
  1. RECLAST [Suspect]
     Indication: OSTEOPOROSIS
     Route: 042
     Dates: start: 20120101
  2. EXFORGE [Concomitant]
     Indication: BLOOD PRESSURE
  3. ANTIBIOTICS [Concomitant]
  4. SYNTHROID [Concomitant]
     Indication: THYROID DISORDER
     Dosage: 75 MG, UNK
     Route: 048

REACTIONS (9)
  - EYE PAIN [None]
  - SWELLING FACE [None]
  - INSOMNIA [None]
  - PAIN [None]
  - FACIAL PAIN [None]
  - PAIN IN JAW [None]
  - ALOPECIA [None]
  - HEADACHE [None]
  - TOOTHACHE [None]
